FAERS Safety Report 8477194 (Version 9)
Quarter: 2013Q4

REPORT INFORMATION
  Report Type: Report from Study
  Country: JP (occurrence: JP)
  Receive Date: 20120326
  Receipt Date: 20131030
  Transmission Date: 20140711
  Serious: Yes (Hospitalization, Other)
  Sender: FDA-Public Use
  Company Number: JP-VERTEX PHARMACEUTICALS INC.-AE-2012-004084

PATIENT
  Age: 68 Year
  Sex: Female

DRUGS (20)
  1. VX-950 (TELAPREVIR) [Suspect]
     Indication: CHRONIC HEPATITIS C
     Dosage: 1500 MG, QD
     Route: 048
     Dates: start: 20120208
  2. VX-950 (TELAPREVIR) [Suspect]
     Dosage: 1500 MG, QD
     Route: 048
     Dates: start: 20120223, end: 20120324
  3. REBETOL [Suspect]
     Indication: CHRONIC HEPATITIS C
     Dosage: 600 MG, QD
     Route: 048
     Dates: start: 20120208, end: 20120317
  4. REBETOL [Suspect]
     Dosage: 400 MG, QD
     Route: 048
     Dates: start: 20120317, end: 20120321
  5. REBETOL [Suspect]
     Dosage: 200 MG, QD
     Route: 048
     Dates: start: 20120322, end: 20120324
  6. REBETOL [Suspect]
     Dosage: 400 MG, QD
     Route: 048
     Dates: start: 20120329, end: 20120330
  7. REBETOL [Suspect]
     Dosage: 200 MG, QD
     Route: 048
     Dates: start: 20120331, end: 20120419
  8. REBETOL [Suspect]
     Dosage: 200 MG, QD
     Route: 048
     Dates: start: 20120423, end: 20120511
  9. REBETOL [Suspect]
     Dosage: 100 MG, QD
     Route: 048
     Dates: start: 20120512, end: 20120515
  10. REBETOL [Suspect]
     Dosage: 400 MG, QD
     Route: 048
     Dates: start: 20120518, end: 20120527
  11. REBETOL [Suspect]
     Dosage: 200 MG, QD
     Route: 048
     Dates: start: 20120528, end: 20120725
  12. PEGINTRON [Concomitant]
     Dosage: 1.5 ?G/KG, QW
     Route: 058
     Dates: start: 20120208, end: 20120725
  13. PARIET [Concomitant]
     Dosage: 10 MG, QD
     Route: 048
  14. SEDEKOPAN [Concomitant]
     Dosage: 1 MG, QD
     Route: 048
     Dates: start: 20120309
  15. SEDEKOPAN [Concomitant]
     Dosage: 1 MG, QD
     Route: 048
  16. GASMOTIN [Concomitant]
     Dosage: 15 MG, QD
     Route: 048
  17. PAXIL [Concomitant]
     Dosage: 20 MG, QD
     Route: 048
  18. DERMOVATE [Concomitant]
     Dosage: Q.S./QD
     Route: 051
     Dates: end: 20120322
  19. NESP [Concomitant]
     Dosage: 60 MG, QD
     Route: 058
     Dates: end: 20120604
  20. ALLOPURINOL [Concomitant]
     Dosage: 100 MG, QD
     Route: 048
     Dates: end: 20120512

REACTIONS (3)
  - Depressive symptom [Recovered/Resolved]
  - Decreased appetite [Recovered/Resolved]
  - Anaemia [Recovered/Resolved]
